FAERS Safety Report 4971589-9 (Version None)
Quarter: 2006Q2

REPORT INFORMATION
  Report Type: 
  Country: None (occurrence: None)
  Receive Date: 20060406
  Receipt Date: 20060320
  Transmission Date: 20061013
  Serious: Yes (Hospitalization)
  Sender: FDA-Public Use
  Company Number: NO200603005613

PATIENT
  Age: 69 Year
  Sex: Female

DRUGS (4)
  1. EVISTA [Suspect]
     Indication: OSTEOPOROSIS
     Dosage: ORAL
     Route: 048
     Dates: start: 20051201
  2. CALCIUM W/COLECALCIFEROL [Concomitant]
  3. TIMOSAN (TIMOLOL MALEATE) EYE DROPS [Concomitant]
  4. FOSAMAX /ITA/ (ALENDRONATE SODIUM) [Concomitant]

REACTIONS (5)
  - DYSPNOEA [None]
  - GINGIVAL PAIN [None]
  - HAEMOLYSIS [None]
  - NECROSIS [None]
  - SEPSIS [None]
